FAERS Safety Report 22754597 (Version 4)
Quarter: 2023Q4

REPORT INFORMATION
  Report Type: Report from Study
  Country: FR (occurrence: FR)
  Receive Date: 20230727
  Receipt Date: 20231006
  Transmission Date: 20240109
  Serious: Yes (Other)
  Sender: FDA-Public Use
  Company Number: FR-JNJFOC-20230743648

PATIENT
  Age: 33 Year
  Sex: Female

DRUGS (3)
  1. SPRAVATO [Suspect]
     Active Substance: ESKETAMINE
     Indication: Product used for unknown indication
     Dates: start: 20220628, end: 20220630
  2. SPRAVATO [Suspect]
     Active Substance: ESKETAMINE
     Dates: start: 20220630, end: 20230825
  3. SPRAVATO [Suspect]
     Active Substance: ESKETAMINE
     Dates: start: 20230623, end: 20230623

REACTIONS (16)
  - Suicidal ideation [Unknown]
  - Somnolence [Recovered/Resolved]
  - Tearfulness [Recovered/Resolved]
  - Asthenia [Recovered/Resolved]
  - Crying [Recovered/Resolved]
  - Panic reaction [Recovered/Resolved]
  - Dissociative disorder [Recovered/Resolved]
  - Vision blurred [Recovered/Resolved]
  - Feeling abnormal [Recovered/Resolved]
  - Nausea [Recovered/Resolved]
  - Derealisation [Recovered/Resolved]
  - Visual impairment [Recovered/Resolved]
  - Vomiting [Recovered/Resolved]
  - Headache [Recovered/Resolved]
  - Depressed mood [Recovered/Resolved]
  - Epistaxis [Recovered/Resolved]

NARRATIVE: CASE EVENT DATE: 20220630
